FAERS Safety Report 6787861-6 (Version None)
Quarter: 2010Q2

REPORT INFORMATION
  Report Type: 
  Country: None (occurrence: None)
  Receive Date: 20100623
  Receipt Date: 20071114
  Transmission Date: 20101027
  Serious: No
  Sender: FDA-Public Use
  Company Number: US-PFIZER INC-2007093509

PATIENT
  Sex: Female
  Weight: 63.5 kg

DRUGS (4)
  1. COLESTID [Suspect]
     Indication: GALLBLADDER OPERATION
     Dates: start: 20071001, end: 20071001
  2. COLESTID [Suspect]
     Indication: TOTAL BILE ACIDS INCREASED
  3. VITAMINS [Concomitant]
  4. PREVACID [Concomitant]
     Indication: HIATUS HERNIA

REACTIONS (1)
  - HIATUS HERNIA [None]
